FAERS Safety Report 25898238 (Version 2)
Quarter: 2025Q4

REPORT INFORMATION
  Report Type: Report from Study
  Country: EU (occurrence: EU)
  Receive Date: 20251008
  Receipt Date: 20251121
  Transmission Date: 20260117
  Serious: Yes (Other)
  Sender: ABBVIE
  Company Number: EU-ABBVIE-6328206

PATIENT
  Age: 60 Year
  Sex: Female

DRUGS (2)
  1. FOSCARBIDOPA\FOSLEVODOPA [Suspect]
     Active Substance: FOSCARBIDOPA\FOSLEVODOPA
     Indication: Parkinson^s disease
     Dosage: LD: 0.6ML; CR: LOW: 0.25ML/H, BASE: 0.34ML/H, HIGH: 0.35ML/H; ED: 0.10ML?LAST ADMIN DATE: 2025
     Route: 058
     Dates: start: 20250509
  2. FOSCARBIDOPA\FOSLEVODOPA [Suspect]
     Active Substance: FOSCARBIDOPA\FOSLEVODOPA
     Dosage: LD: 0.6ML; CR: LOW: 0.25ML/H, BASE: 0.34ML/H, HIGH: 0.35ML/H; ED: 0.10ML?FIRST ADMIN DATE: 2025
     Route: 058
     Dates: end: 20250625

REACTIONS (10)
  - Spinal decompression [Recovered/Resolved]
  - Injection site erythema [Recovered/Resolved]
  - Infusion site pain [Not Recovered/Not Resolved]
  - Injection site induration [Recovered/Resolved]
  - Injection site induration [Not Recovered/Not Resolved]
  - Pyrexia [Recovered/Resolved]
  - Injection site erythema [Recovered/Resolved]
  - Injection site infection [Recovered/Resolved]
  - Injection site indentation [Unknown]
  - Infusion site infection [Recovered/Resolved]

NARRATIVE: CASE EVENT DATE: 20250101
